FAERS Safety Report 6478853-5 (Version None)
Quarter: 2009Q4

REPORT INFORMATION
  Report Type: 
  Country: None (occurrence: None)
  Receive Date: 20091207
  Receipt Date: 20091125
  Transmission Date: 20100525
  Serious: Yes (Other)
  Sender: FDA-Public Use
  Company Number: HK-GILEAD-E2B_00000489

PATIENT
  Age: 38 Year
  Sex: Male

DRUGS (1)
  1. HEPSERA [Suspect]
     Indication: DRUG USE FOR UNKNOWN INDICATION
     Route: 065
     Dates: start: 20080228

REACTIONS (1)
  - ALANINE AMINOTRANSFERASE INCREASED [None]
